FAERS Safety Report 7625580 (Version 2)
Quarter: 2013Q1

REPORT INFORMATION
  Report Type: Report from Study
  Country: FR (occurrence: FR)
  Receive Date: 20101012
  Receipt Date: 20130207
  Transmission Date: 20140127
  Serious: Yes (Hospitalization)
  Sender: FDA-Public Use
  Company Number: PHHO2010FR14875

PATIENT
  Age: 54 Year
  Sex: Male

DRUGS (12)
  1. EVEROLIMUS [Suspect]
     Indication: NON-SMALL CELL LUNG CANCER
     Dosage: 2.5 MG, QD
     Route: 048
     Dates: start: 20100504, end: 20100719
  2. EVEROLIMUS [Suspect]
     Indication: ADENOCARCINOMA
  3. RADIATION THERAPY [Suspect]
     Indication: NON-SMALL CELL LUNG CANCER
     Dosage: UNKNOWN
     Dates: start: 20100512, end: 20100630
  4. NAVELBINE [Suspect]
     Dosage: 50 MG, QD
     Dates: start: 20100728
  5. NAVELBINE [Suspect]
     Dosage: 50 MG, QD
     Dates: start: 20100804
  6. NAVELBINE [Suspect]
     Dosage: 50 MG, QD
     Dates: start: 20100825
  7. CISPLATIN [Suspect]
     Dosage: 200 MG, QD
     Dates: start: 20100728
  8. CISPLATIN [Suspect]
     Dosage: 200 MG, QD
     Dates: start: 20100919
  9. ZOPHREN [Concomitant]
  10. KYTRIL [Concomitant]
  11. PRIMPERAN [Concomitant]
  12. INEGY [Concomitant]

REACTIONS (6)
  - Pulmonary embolism [Not Recovered/Not Resolved]
  - Radiation pneumonitis [Unknown]
  - Lung disorder [Not Recovered/Not Resolved]
  - Dyspnoea [Not Recovered/Not Resolved]
  - Cough [Not Recovered/Not Resolved]
  - Pyrexia [Not Recovered/Not Resolved]
